FAERS Safety Report 8589647-9 (Version None)
Quarter: 2012Q3

REPORT INFORMATION
  Report Type: 
  Country: None (occurrence: None)
  Receive Date: 20120813
  Receipt Date: 20120806
  Transmission Date: 20120928
  Serious: Yes (Other)
  Sender: FDA-Public Use
  Company Number: US-ROCHE-1065001

PATIENT
  Sex: Female
  Weight: 68.1 kg

DRUGS (4)
  1. ACCUTANE [Suspect]
     Indication: ACNE
     Dates: start: 19860101
  2. LOESTRIN 1.5/30 [Concomitant]
  3. ACCUTANE [Suspect]
     Dates: start: 19870210, end: 19870805
  4. ACCUTANE [Suspect]
     Dates: end: 19880101

REACTIONS (3)
  - STRESS [None]
  - INFLAMMATORY BOWEL DISEASE [None]
  - COLITIS ULCERATIVE [None]
